FAERS Safety Report 23828505 (Version 1)
Quarter: 2024Q2

REPORT INFORMATION
  Report Type: Spontaneous
  Country: US (occurrence: US)
  Receive Date: 20240508
  Receipt Date: 20240508
  Transmission Date: 20240716
  Serious: No
  Sender: FDA-Public Use
  Company Number: US-PADAGIS-2024PAD00748

PATIENT

DRUGS (3)
  1. TESTOSTERONE [Suspect]
     Active Substance: TESTOSTERONE
     Indication: Blood testosterone decreased
     Dosage: 2 PUMPS A DAY
     Route: 061
     Dates: start: 202312
  2. TESTOSTERONE [Suspect]
     Active Substance: TESTOSTERONE
     Dosage: 1 PUMP A DAY (FULL PUMP)
     Route: 061
  3. TESTOSTERONE [Suspect]
     Active Substance: TESTOSTERONE
     Dosage: 3/4 PUMP A DAY
     Route: 061
     Dates: start: 202312

REACTIONS (4)
  - Drug ineffective [Unknown]
  - Product use issue [Unknown]
  - Underdose [Unknown]
  - Product dose omission issue [Unknown]

NARRATIVE: CASE EVENT DATE: 20240201
